FAERS Safety Report 24017927 (Version 1)
Quarter: 2024Q2

REPORT INFORMATION
  Report Type: Report from Study
  Country: CO (occurrence: CO)
  Receive Date: 20240627
  Receipt Date: 20240627
  Transmission Date: 20240716
  Serious: Yes (Hospitalization, Disabling)
  Sender: FDA-Public Use
  Company Number: CO-ROCHE-10000006123

PATIENT
  Age: 49 Year
  Sex: Male
  Weight: 48 kg

DRUGS (3)
  1. ENSPRYNG [Suspect]
     Active Substance: SATRALIZUMAB-MWGE
     Indication: Neuromyelitis optica spectrum disorder
     Dosage: 06/MAY/2024, START DATE OF MOST RECENT DOSE OF THE STUDY DRUG PRIOR TO AE
     Route: 058
     Dates: start: 20230505
  2. BACLOFEN [Concomitant]
     Active Substance: BACLOFEN
     Dosage: DOSE AND FREQUENCY WERE NOT REPORTED
  3. PREGABALIN [Concomitant]
     Active Substance: PREGABALIN
     Dosage: DOSE AND FREQUENCY WERE NOT REPORTED

REACTIONS (2)
  - Mobility decreased [Recovered/Resolved with Sequelae]
  - Urinary tract infection [Recovered/Resolved]

NARRATIVE: CASE EVENT DATE: 20240401
